FAERS Safety Report 6575065-1 (Version None)
Quarter: 2010Q1

REPORT INFORMATION
  Report Type: 
  Country: None (occurrence: None)
  Receive Date: 20100209
  Receipt Date: 20100129
  Transmission Date: 20100710
  Serious: Yes (Other)
  Sender: FDA-Public Use
  Company Number: CA-AMGEN-KDL294923

PATIENT
  Sex: Male
  Weight: 68.6 kg

DRUGS (2)
  1. ENBREL [Suspect]
     Indication: PSORIASIS
     Route: 058
     Dates: start: 20080601, end: 20091015
  2. AVAPRO [Concomitant]

REACTIONS (8)
  - CHILLS [None]
  - FATIGUE [None]
  - LETHARGY [None]
  - NEUROLOGICAL SYMPTOM [None]
  - PYREXIA [None]
  - TREMOR [None]
  - VIRAL INFECTION [None]
  - WEIGHT DECREASED [None]
